FAERS Safety Report 5518022-6 (Version None)
Quarter: 2007Q4

REPORT INFORMATION
  Report Type: 
  Country: None (occurrence: None)
  Receive Date: 20071113
  Receipt Date: 20071107
  Transmission Date: 20080405
  Serious: Yes (Life-Threatening, Hospitalization)
  Sender: FDA-Public Use
  Company Number: TCI2007A06000

PATIENT
  Age: 45 Year
  Sex: Female

DRUGS (1)
  1. LEUPROLIDE ACETATE [Suspect]
     Indication: UTERINE LEIOMYOMA
     Dosage: 1.88 MG (1.88 MG, 1 IN 28 D) SUBCUTANEOUS
     Route: 058
     Dates: start: 20070521, end: 20070618

REACTIONS (4)
  - CEREBRAL HAEMORRHAGE [None]
  - CEREBRAL INFARCTION [None]
  - CEREBROVASCULAR SPASM [None]
  - HEADACHE [None]
